FAERS Safety Report 5080419-9 (Version None)
Quarter: 2006Q3

REPORT INFORMATION
  Report Type: 
  Country: None (occurrence: None)
  Receive Date: 20060814
  Receipt Date: 20060814
  Transmission Date: 20061208
  Serious: No
  Sender: FDA-Public Use
  Company Number: None

PATIENT
  Sex: Female
  Weight: 56.6996 kg

DRUGS (1)
  1. DEXAMETHASONE SODIUM PHOSPHATE [Suspect]
     Indication: RASH PRURITIC
     Dosage: 8 MG (2 ML)  ONCE  IM/GLUTE
     Route: 030
     Dates: start: 20060625, end: 20060627

REACTIONS (2)
  - EYELID OEDEMA [None]
  - SWELLING FACE [None]
